FAERS Safety Report 16032540 (Version 2)
Quarter: 2019Q1

REPORT INFORMATION
  Report Type: Spontaneous
  Country: US (occurrence: US)
  Receive Date: 20190304
  Receipt Date: 20190316
  Transmission Date: 20190418
  Serious: Yes (Other)
  Sender: FDA-Public Use
  Company Number: US-AUROBINDO-AUR-APL-2019-011334

PATIENT

DRUGS (2)
  1. VENLAFAXINE HYDROCHLORIDE TABLETS 37.5 MG [Suspect]
     Active Substance: VENLAFAXINE HYDROCHLORIDE
     Indication: PERINATAL DEPRESSION
     Dosage: 37.5 MILLIGRAM, EVERY THREE DAYS
     Route: 065
  2. VENLAFAXINE HYDROCHLORIDE TABLETS 37.5 MG [Suspect]
     Active Substance: VENLAFAXINE HYDROCHLORIDE
     Dosage: 75 MILLIGRAM
     Route: 065

REACTIONS (6)
  - Feeling abnormal [Unknown]
  - Withdrawal syndrome [Unknown]
  - Depressed mood [Recovering/Resolving]
  - Crying [Recovering/Resolving]
  - Mood swings [Recovering/Resolving]
  - Suicidal ideation [Recovering/Resolving]
